FAERS Safety Report 10477889 (Version 1)
Quarter: 2014Q3

REPORT INFORMATION
  Report Type: Spontaneous
  Country: US (occurrence: None)
  Receive Date: 20140925
  Receipt Date: 20140925
  Transmission Date: 20150326
  Serious: Yes (Life-Threatening, Hospitalization)
  Sender: FDA-Public Use
  Company Number: None

PATIENT
  Age: 82 Year
  Sex: Female
  Weight: 74.39 kg

DRUGS (6)
  1. VIT. B COMPLEX [Concomitant]
  2. AMLODIPINE [Suspect]
     Active Substance: AMLODIPINE BESYLATE
     Indication: HYPERTENSION
     Dosage: 10 MG, 1 PER DAY, ONCE DAILY, MOUTH
     Route: 048
     Dates: end: 201312
  3. LEVOTHYROXINE [Concomitant]
     Active Substance: LEVOTHYROXINE
  4. VITAMIN C [Concomitant]
     Active Substance: ASCORBIC ACID
  5. MSM [Concomitant]
  6. GLUCASAMINE [Concomitant]

REACTIONS (4)
  - Muscular weakness [None]
  - Sarcoma [None]
  - Arthralgia [None]
  - Dermal cyst [None]

NARRATIVE: CASE EVENT DATE: 201311
